FAERS Safety Report 9886570 (Version 2)
Quarter: 2014Q1

REPORT INFORMATION
  Report Type: Spontaneous
  Country: US (occurrence: US)
  Receive Date: 20140210
  Receipt Date: 20140319
  Transmission Date: 20141002
  Serious: Yes (Other)
  Sender: FDA-Public Use
  Company Number: US-ELI_LILLY_AND_COMPANY-US201402000275

PATIENT
  Age: 69 Year
  Sex: Male

DRUGS (1)
  1. INSULIN HUMAN [Suspect]
     Indication: DIABETES MELLITUS
     Dosage: 64 U, UNKNOWN
     Route: 065

REACTIONS (2)
  - Cognitive disorder [Recovered/Resolved]
  - Incorrect dose administered [Recovered/Resolved]
